FAERS Safety Report 6441243-5 (Version None)
Quarter: 2009Q4

REPORT INFORMATION
  Report Type: 
  Country: None (occurrence: None)
  Receive Date: 20091116
  Receipt Date: 20091104
  Transmission Date: 20100525
  Serious: Yes (Hospitalization)
  Sender: FDA-Public Use
  Company Number: US-ELI_LILLY_AND_COMPANY-US200907007220

PATIENT
  Sex: Female
  Weight: 45.351 kg

DRUGS (4)
  1. FORTEO [Suspect]
     Indication: OSTEOPOROSIS
     Dosage: 20 UG, DAILY (1/D)
     Dates: start: 20090401
  2. FORTEO [Suspect]
     Dosage: UNK, UNK
     Dates: start: 20090401
  3. CALCIUM [Concomitant]
     Dosage: 600 MG, 2/D
  4. VITAMIN D [Concomitant]
     Dosage: 50000 U, MONTHLY (1/M)

REACTIONS (8)
  - CONFUSIONAL STATE [None]
  - CONTUSION [None]
  - DEHYDRATION [None]
  - GASTROENTERITIS [None]
  - INJECTION SITE ERYTHEMA [None]
  - INJECTION SITE HAEMATOMA [None]
  - NERVOUSNESS [None]
  - SOMNOLENCE [None]
